FAERS Safety Report 8392126-5 (Version None)
Quarter: 2012Q2

REPORT INFORMATION
  Report Type: 
  Country: None (occurrence: None)
  Receive Date: 20120529
  Receipt Date: 20120515
  Transmission Date: 20120825
  Serious: Yes (Death)
  Sender: FDA-Public Use
  Company Number: JP-JNJFOC-20110800641

PATIENT
  Age: 59 Year
  Sex: Male

DRUGS (2)
  1. FENTANYL-100 [Suspect]
     Indication: CANCER PAIN
     Route: 062
  2. FLURBIPROFEN [Concomitant]
     Indication: CANCER PAIN
     Route: 065

REACTIONS (2)
  - SOMNOLENCE [None]
  - GASTRIC CANCER [None]
